FAERS Safety Report 16851758 (Version 1)
Quarter: 2019Q3

REPORT INFORMATION
  Report Type: Spontaneous
  Country: US (occurrence: US)
  Receive Date: 20190925
  Receipt Date: 20190925
  Transmission Date: 20191005
  Serious: Yes (Life-Threatening, Hospitalization)
  Sender: FDA-Public Use
  Company Number: US-TEVA-2019-US-1112150

PATIENT
  Age: 73 Year
  Sex: Female

DRUGS (5)
  1. REPAGLINIDE. [Suspect]
     Active Substance: REPAGLINIDE
     Indication: TYPE 2 DIABETES MELLITUS
     Route: 065
  2. INSULIN GLARGINE [Suspect]
     Active Substance: INSULIN GLARGINE
     Indication: TYPE 2 DIABETES MELLITUS
     Route: 065
  3. DEXTROSE. [Suspect]
     Active Substance: DEXTROSE
     Indication: HYPOGLYCAEMIA
     Dosage: INFUSION
     Route: 065
  4. DEXTROSE. [Suspect]
     Active Substance: DEXTROSE
     Indication: HYPOGLYCAEMIA
     Route: 065
  5. METFORMIN [Suspect]
     Active Substance: METFORMIN HYDROCHLORIDE
     Indication: TYPE 2 DIABETES MELLITUS
     Route: 065

REACTIONS (8)
  - Encephalopathy [Not Recovered/Not Resolved]
  - Unresponsive to stimuli [Not Recovered/Not Resolved]
  - Drug ineffective [Unknown]
  - Brain injury [Recovering/Resolving]
  - Coma scale abnormal [Not Recovered/Not Resolved]
  - Hypoglycaemia [Recovered/Resolved]
  - Hypotonia [Not Recovered/Not Resolved]
  - Areflexia [Not Recovered/Not Resolved]
